FAERS Safety Report 23619749 (Version 5)
Quarter: 2024Q2

REPORT INFORMATION
  Report Type: Spontaneous
  Country: CA (occurrence: CA)
  Receive Date: 20240312
  Receipt Date: 20240610
  Transmission Date: 20240716
  Serious: Yes (Other)
  Sender: FDA-Public Use
  Company Number: CA-ADVANZ PHARMA-202306004506

PATIENT
  Age: 72 Year
  Sex: Female
  Weight: 54.4 kg

DRUGS (7)
  1. OCALIVA [Suspect]
     Active Substance: OBETICHOLIC ACID
     Indication: Primary biliary cholangitis
     Dosage: 5 MG, QD
     Route: 048
     Dates: start: 20230505
  2. OCALIVA [Suspect]
     Active Substance: OBETICHOLIC ACID
     Dosage: 5 MG, QOD (REDUCED DOSE)
     Route: 048
     Dates: start: 20240308
  3. OCALIVA [Suspect]
     Active Substance: OBETICHOLIC ACID
     Dosage: 5 MG ONCE EVERY 2 DAYS
     Route: 048
  4. URSODIOL [Concomitant]
     Active Substance: URSODIOL
     Dosage: 500 MG, BID
     Route: 048
     Dates: start: 202201
  5. IRON [Concomitant]
     Active Substance: IRON
     Dosage: UNK UNK, BID (IRON PILLS)
  6. VITAMIN C [Concomitant]
     Active Substance: ASCORBIC ACID
     Dosage: UNK UNK, QD
  7. CHOLESTYRAMINE [Concomitant]
     Active Substance: CHOLESTYRAMINE
     Dosage: UNK UNK, BID

REACTIONS (9)
  - Blindness [Unknown]
  - Diabetes mellitus [Unknown]
  - Contusion [Unknown]
  - Erythema [Unknown]
  - Skin haemorrhage [Not Recovered/Not Resolved]
  - Scratch [Recovering/Resolving]
  - Pruritus [Recovering/Resolving]
  - Product dose omission issue [Unknown]
  - Product use issue [Unknown]
